FAERS Safety Report 14771282 (Version 1)
Quarter: 2018Q2

REPORT INFORMATION
  Report Type: Spontaneous
  Country: DE (occurrence: DE)
  Receive Date: 20180417
  Receipt Date: 20180417
  Transmission Date: 20180711
  Serious: Yes (Other)
  Sender: FDA-Public Use
  Company Number: DE-009507513-1804DEU006660

PATIENT
  Age: 53 Year
  Sex: Female

DRUGS (5)
  1. AMISULPRIDE [Concomitant]
     Active Substance: AMISULPRIDE
  2. RIBAVIRIN. [Suspect]
     Active Substance: RIBAVIRIN
     Indication: CHRONIC HEPATITIS C
     Route: 065
  3. LEDIPASVIR (+) SOFOSBUVIR [Suspect]
     Active Substance: LEDIPASVIR\SOFOSBUVIR
     Indication: CHRONIC HEPATITIS C
     Dosage: UNK
     Route: 065
  4. MELPERONE [Concomitant]
     Active Substance: MELPERONE
     Dosage: UNK
  5. BIPERIDEN [Concomitant]
     Active Substance: BIPERIDEN

REACTIONS (1)
  - Treatment failure [Unknown]
